FAERS Safety Report 4330524-7 (Version None)
Quarter: 2004Q2

REPORT INFORMATION
  Report Type: 
  Country: None (occurrence: None)
  Receive Date: 20040401
  Receipt Date: 20040401
  Transmission Date: 20050107
  Serious: Yes (Hospitalization)
  Sender: FDA-Public Use
  Company Number: None

PATIENT
  Age: 61 Year

DRUGS (2)
  1. ZITHROMAX [Suspect]
     Dosage: ORAL
     Route: 048
  2. LIPITOR [Suspect]
     Dosage: ORAL
     Route: 048

REACTIONS (1)
  - HEPATITIS [None]
